FAERS Safety Report 11250937 (Version 1)
Quarter: 2015Q3

REPORT INFORMATION
  Report Type: Spontaneous
  Country: US (occurrence: US)
  Receive Date: 20150708
  Receipt Date: 20150708
  Transmission Date: 20151125
  Serious: Yes (Other)
  Sender: FDA-Public Use
  Company Number: US-ELI_LILLY_AND_COMPANY-US201011003010

PATIENT
  Age: 35 Year
  Sex: Male

DRUGS (2)
  1. DOCETAXEL. [Concomitant]
     Active Substance: DOCETAXEL
     Indication: PANCREATIC CARCINOMA METASTATIC
     Dosage: UNK, UNK
     Route: 042
     Dates: start: 20041212
  2. GEMCITABINE HYDROCHLORIDE. [Suspect]
     Active Substance: GEMCITABINE HYDROCHLORIDE
     Indication: PANCREATIC CARCINOMA METASTATIC
     Route: 042
     Dates: start: 20041212

REACTIONS (1)
  - Malignant neoplasm progression [Unknown]
